FAERS Safety Report 22054687 (Version 2)
Quarter: 2023Q2

REPORT INFORMATION
  Report Type: Spontaneous
  Country: US (occurrence: US)
  Receive Date: 20230302
  Receipt Date: 20230512
  Transmission Date: 20230721
  Serious: No
  Sender: FDA-Public Use
  Company Number: US-PFIZER INC-202300086415

PATIENT
  Age: 57 Year
  Sex: Female
  Weight: 58.05 kg

DRUGS (1)
  1. LINEZOLID [Suspect]
     Active Substance: LINEZOLID
     Indication: Atypical mycobacterial infection
     Dosage: UNK, 1X/DAY
     Dates: start: 202301, end: 202302

REACTIONS (3)
  - Platelet count decreased [Recovering/Resolving]
  - Red blood cell count abnormal [Unknown]
  - Off label use [Unknown]

NARRATIVE: CASE EVENT DATE: 20230101
